FAERS Safety Report 26208398 (Version 1)
Quarter: 2025Q4

REPORT INFORMATION
  Report Type: Spontaneous
  Country: AU (occurrence: AU)
  Receive Date: 20251229
  Receipt Date: 20251229
  Transmission Date: 20260117
  Serious: Yes (Death, Life-Threatening, Hospitalization, Other)
  Sender: SANDOZ
  Company Number: AU-SANDOZ-SDZ2023AU002913

PATIENT
  Sex: Male

DRUGS (15)
  1. POSACONAZOLE [Suspect]
     Active Substance: POSACONAZOLE
     Indication: Fungal infection
     Dosage: 300MG AT MORNING AND 200MG AT NIGHT FOR 12 WEEKS
  2. POSACONAZOLE [Suspect]
     Active Substance: POSACONAZOLE
     Indication: Antifungal prophylaxis
     Dosage: UNK, QD
  3. POSACONAZOLE [Suspect]
     Active Substance: POSACONAZOLE
     Indication: Complications of transplant surgery
     Dosage: 200 MG
  4. POSACONAZOLE [Suspect]
     Active Substance: POSACONAZOLE
     Dosage: 300 MG
  5. POSACONAZOLE [Suspect]
     Active Substance: POSACONAZOLE
     Dosage: 1000 MG
  6. POSACONAZOLE [Suspect]
     Active Substance: POSACONAZOLE
     Dosage: 1000 MG, QD
  7. TERBINAFINE [Suspect]
     Active Substance: TERBINAFINE
     Indication: Fungal infection
     Dosage: UNK
  8. TERBINAFINE [Suspect]
     Active Substance: TERBINAFINE
     Indication: Complications of transplant surgery
     Dosage: UNK
  9. AMPHOTERICIN B [Suspect]
     Active Substance: AMPHOTERICIN B
     Indication: Fungal infection
     Dosage: 5 MG/KG/DAY
  10. AMPHOTERICIN B [Suspect]
     Active Substance: AMPHOTERICIN B
     Indication: Antifungal prophylaxis
     Dosage: UNK
  11. AMPHOTERICIN B [Suspect]
     Active Substance: AMPHOTERICIN B
     Indication: Complications of transplant surgery
     Dosage: UNK
  12. ANIDULAFUNGIN [Suspect]
     Active Substance: ANIDULAFUNGIN
     Indication: Fungal infection
     Dosage: 100 MG/DAY
  13. ANIDULAFUNGIN [Suspect]
     Active Substance: ANIDULAFUNGIN
     Indication: Complications of transplant surgery
     Dosage: UNK
  14. ISAVUCONAZOLE [Suspect]
     Active Substance: ISAVUCONAZOLE
     Indication: Fungal infection
     Dosage: HIGH DOSE
  15. ISAVUCONAZOLE [Suspect]
     Active Substance: ISAVUCONAZOLE
     Indication: Complications of transplant surgery
     Dosage: UNK

REACTIONS (2)
  - Drug ineffective [Fatal]
  - Infection [Fatal]
